FAERS Safety Report 8504740-4 (Version None)
Quarter: 2012Q3

REPORT INFORMATION
  Report Type: 
  Country: None (occurrence: None)
  Receive Date: 20120712
  Receipt Date: 20120629
  Transmission Date: 20120928
  Serious: Yes (Death, Hospitalization, Other)
  Sender: FDA-Public Use
  Company Number: US-BRISTOL-MYERS SQUIBB COMPANY-15447832

PATIENT
  Age: 89 Year
  Sex: Male

DRUGS (33)
  1. FLOMAX [Concomitant]
     Dosage: 1DF=0.4MG CAPS,2CAPS/D,AT NIGHT
     Route: 048
  2. FOSAMAX [Concomitant]
  3. ZANTAC [Concomitant]
     Indication: GASTROOESOPHAGEAL REFLUX DISEASE
     Dosage: TAB
     Route: 048
  4. AMBIEN [Concomitant]
     Dosage: AMBIEN 5MG TABS,1 TAB/D
     Route: 048
  5. MYLANTA [Concomitant]
     Indication: DYSPEPSIA
     Route: 048
  6. ACETAMINOPHEN [Concomitant]
     Indication: PAIN
     Dosage: 1DF=2 TABS(325MG)
     Route: 048
  7. ZOSYN [Concomitant]
     Route: 042
  8. DOXYCYCLINE HYCLATE [Concomitant]
     Route: 048
  9. LEVOFLOXACIN [Concomitant]
     Route: 042
     Dates: start: 20101214, end: 20101222
  10. COREG [Concomitant]
     Dosage: HALF TAB/D
     Route: 048
  11. LISINOPRIL [Concomitant]
     Dosage: TABS
     Route: 048
  12. MOM [Concomitant]
     Indication: CONSTIPATION
     Route: 048
  13. IPILIMUMAB [Suspect]
     Indication: MALIGNANT MELANOMA
     Dosage: 1DF:234 UNITS NOS 21-21OCT10,234MG,C1 11-11NOV10,231MG,C2 2-2DEC10,228MG,C3
     Route: 042
     Dates: start: 20101021, end: 20101202
  14. VITAMIN D [Concomitant]
     Dosage: CAPS
     Route: 048
  15. PROSCAR [Concomitant]
     Route: 048
  16. MYLANTA [Concomitant]
     Route: 048
  17. MYLANTA [Concomitant]
     Indication: ABDOMINAL DISCOMFORT
     Route: 048
  18. KAOPECTATE [Concomitant]
     Indication: DIARRHOEA
     Dosage: 1DF=1 OZ
  19. FLAGYL [Concomitant]
     Dates: start: 20101214, end: 20101225
  20. MEGACE [Concomitant]
     Indication: DECREASED APPETITE
     Dosage: 1DF=800MG/20ML ALSO 40MG/ML PO SUSPENSION
     Route: 048
  21. ZOCOR [Concomitant]
     Dosage: TABS
     Route: 048
  22. MAGNESIUM OXIDE [Concomitant]
     Dosage: TABS
     Route: 048
  23. PROTONIX [Concomitant]
     Dosage: TABS
     Route: 048
     Dates: start: 20101202, end: 20101221
  24. OMEPRAZOLE [Concomitant]
  25. VANCOMYCIN [Concomitant]
     Dates: start: 20101222, end: 20101225
  26. IPRATROPIUM BROMIDE [Concomitant]
     Route: 055
  27. PROCHLORPERAZINE MALEATE [Concomitant]
     Indication: VOMITING
     Dosage: 1 TAB Q6-8 HR
     Route: 048
     Dates: start: 20101202, end: 20101221
  28. DULCOLAX [Concomitant]
     Indication: CONSTIPATION
     Dosage: SUPPOSITORY
     Route: 054
  29. XOPENEX [Concomitant]
     Dosage: 1DF= 1.25MG/3ML
     Route: 055
  30. IMODIUM [Concomitant]
     Dates: start: 20101202, end: 20101225
  31. VENTOLIN [Concomitant]
     Dosage: Q4-6HRS 1DF:1-2 PUFFS VENTOLIN HFA 108(90 BASE)
     Route: 055
  32. ONDANSETRON HCL [Concomitant]
     Dosage: TABS,Q6-8 HRS
     Route: 048
     Dates: start: 20101202, end: 20101221
  33. PROCHLORPERAZINE MALEATE [Concomitant]
     Indication: NAUSEA
     Dosage: 1 TAB Q6-8 HR
     Route: 048
     Dates: start: 20101202, end: 20101221

REACTIONS (11)
  - SEPSIS [None]
  - NEOPLASM MALIGNANT [None]
  - BACTERIURIA [None]
  - PNEUMONIA [None]
  - RENAL FAILURE ACUTE [None]
  - NAUSEA [None]
  - ANAEMIA [None]
  - DIVERTICULUM [None]
  - VOMITING [None]
  - ACUTE RESPIRATORY FAILURE [None]
  - DIVERTICULITIS [None]
